FAERS Safety Report 12619197 (Version 1)
Quarter: 2016Q3

REPORT INFORMATION
  Report Type: Spontaneous
  Country: US (occurrence: US)
  Receive Date: 20160803
  Receipt Date: 20160803
  Transmission Date: 20161109
  Serious: No
  Sender: FDA-Public Use
  Company Number: US-INCYTE CORPORATION-2016IN004591

PATIENT
  Sex: Female
  Weight: 78.5 kg

DRUGS (3)
  1. JAKAFI [Suspect]
     Active Substance: RUXOLITINIB
     Indication: MYELOFIBROSIS
     Dosage: 10 MG, BID
     Route: 048
  2. COLLAGEN [Concomitant]
     Active Substance: COLLAGEN
     Indication: PRODUCT USED FOR UNKNOWN INDICATION
  3. GREEN TEA PILLS [Concomitant]
     Indication: PRODUCT USED FOR UNKNOWN INDICATION

REACTIONS (2)
  - Eructation [Unknown]
  - Memory impairment [Unknown]
